FAERS Safety Report 24381153 (Version 5)
Quarter: 2025Q2

REPORT INFORMATION
  Report Type: Spontaneous
  Country: US (occurrence: US)
  Receive Date: 20240930
  Receipt Date: 20250403
  Transmission Date: 20250716
  Serious: No
  Sender: BRISTOL MYERS SQUIBB
  Company Number: US-BRISTOL-MYERS SQUIBB COMPANY-2024-151347

PATIENT
  Age: 35 Year
  Sex: Female

DRUGS (4)
  1. ORENCIA [Suspect]
     Active Substance: ABATACEPT
     Indication: Rheumatoid arthritis
     Route: 058
     Dates: start: 202409
  2. ORENCIA [Suspect]
     Active Substance: ABATACEPT
     Route: 058
     Dates: start: 202409
  3. ORENCIA [Suspect]
     Active Substance: ABATACEPT
     Route: 058
     Dates: start: 202409
  4. ORENCIA [Suspect]
     Active Substance: ABATACEPT
     Route: 058
     Dates: start: 202409

REACTIONS (12)
  - Paraesthesia [Recovering/Resolving]
  - Chills [Recovered/Resolved]
  - Hypoaesthesia [Recovering/Resolving]
  - Feeling hot [Recovering/Resolving]
  - Fatigue [Unknown]
  - Back pain [Unknown]
  - Pruritus [Unknown]
  - Urticaria [Unknown]
  - Headache [Unknown]
  - Nausea [Recovered/Resolved]
  - Dizziness [Recovered/Resolved]
  - Oropharyngeal pain [Unknown]
